FAERS Safety Report 18089664 (Version 1)
Quarter: 2020Q3

REPORT INFORMATION
  Report Type: Spontaneous
  Country: US (occurrence: US)
  Receive Date: 20200729
  Receipt Date: 20200729
  Transmission Date: 20201103
  Serious: Yes (Other)
  Sender: FDA-Public Use
  Company Number: US-NEUROCRINE BIOSCIENCES INC.-2020NBI02563

PATIENT
  Age: 72 Year
  Sex: Female

DRUGS (1)
  1. INGREZZA [Suspect]
     Active Substance: VALBENAZINE
     Indication: TARDIVE DYSKINESIA
     Dosage: STARTED AT 2 X 40 MG CAPSULES AND THEN 80 MG CAPSULES ONCE A DAY
     Route: 048
     Dates: start: 2018, end: 20200716

REACTIONS (4)
  - Anger [Unknown]
  - Transient ischaemic attack [Unknown]
  - Insomnia [Recovered/Resolved]
  - Dyspnoea [Unknown]

NARRATIVE: CASE EVENT DATE: 202007
